FAERS Safety Report 26017592 (Version 1)
Quarter: 2025Q4

REPORT INFORMATION
  Report Type: Spontaneous
  Country: EU (occurrence: EU)
  Receive Date: 20251110
  Receipt Date: 20251110
  Transmission Date: 20260117
  Serious: Yes (Life-Threatening, Hospitalization)
  Sender: CHEPLAPHARM
  Company Number: None

PATIENT
  Age: 46 Year
  Sex: Male
  Weight: 77 kg

DRUGS (26)
  1. QUETIAPINE [Suspect]
     Active Substance: QUETIAPINE
     Indication: Schizophrenia
     Dosage: AT BEDTIME SINCE JUNE?DAILY DOSE: 800 MILLIGRAM
     Route: 048
     Dates: start: 202503, end: 20251002
  2. QUETIAPINE [Suspect]
     Active Substance: QUETIAPINE
     Indication: Schizophrenia
     Dosage: IN THE EVENING FOR 3 DAYS?DAILY DOSE: 300 MILLIGRAM
     Route: 048
     Dates: start: 202503
  3. QUETIAPINE [Suspect]
     Active Substance: QUETIAPINE
     Indication: Schizophrenia
     Dosage: IN THE EVENING?DAILY DOSE: 600 MILLIGRAM
     Route: 048
  4. CLOZAPINE [Suspect]
     Active Substance: CLOZAPINE
     Indication: Schizophrenia
     Dosage: DAILY DOSE: 900 MILLIGRAM
     Route: 048
     Dates: start: 202502, end: 20251002
  5. CLOZAPINE [Suspect]
     Active Substance: CLOZAPINE
     Indication: Schizophrenia
     Dosage: IN THE MORNING?DAILY DOSE: 200 MILLIGRAM
     Route: 048
     Dates: start: 202502
  6. CLOZAPINE [Suspect]
     Active Substance: CLOZAPINE
     Indication: Schizophrenia
     Dosage: IN THE MORNING?DAILY DOSE: 400 MILLIGRAM
     Route: 048
     Dates: start: 202505
  7. CLOZAPINE [Suspect]
     Active Substance: CLOZAPINE
     Indication: Schizophrenia
     Dosage: IN THE EVENING?DAILY DOSE: 500 MILLIGRAM
     Route: 048
     Dates: start: 202505
  8. CLOZAPINE [Suspect]
     Active Substance: CLOZAPINE
     Indication: Schizophrenia
     Dosage: IN THE EVENING ONLY
     Route: 048
  9. HALDOL [Suspect]
     Active Substance: HALOPERIDOL
     Indication: Schizophrenia
     Dosage: DAILY DOSE: 20 MILLIGRAM
     Route: 048
     Dates: start: 202501, end: 20251002
  10. HALDOL [Suspect]
     Active Substance: HALOPERIDOL
     Indication: Schizophrenia
     Route: 042
     Dates: start: 20251014
  11. LEVOMEPROMAZINE [Suspect]
     Active Substance: LEVOMEPROMAZINE
     Indication: Schizophrenia
     Dosage: 25 MG MORNING, NOON AND EVENING
     Route: 048
     Dates: start: 202504, end: 20251002
  12. LEVOMEPROMAZINE [Suspect]
     Active Substance: LEVOMEPROMAZINE
     Indication: Schizophrenia
     Dosage: 4/DAY
     Route: 048
  13. LOVENOX [Suspect]
     Active Substance: ENOXAPARIN SODIUM
     Dosage: DAILY DOSE: 4000 IU (INTERNATIONAL UNIT)
  14. FLUCONAZOLE [Suspect]
     Active Substance: FLUCONAZOLE
     Route: 042
     Dates: end: 20251018
  15. PIPERACILLIN SODIUM\TAZOBACTAM SODIUM [Suspect]
     Active Substance: PIPERACILLIN SODIUM\TAZOBACTAM SODIUM
     Dosage: DAILY DOSE: 8 GRAM
     Dates: end: 20251017
  16. ACETAMINOPHEN [Suspect]
     Active Substance: ACETAMINOPHEN
     Dosage: DAILY DOSE: 4 GRAM
  17. MORPHINE SULFATE [Suspect]
     Active Substance: MORPHINE SULFATE
     Dosage: DAILY DOSE: 40 MILLIGRAM
  18. NEFOPAM [Suspect]
     Active Substance: NEFOPAM
     Dosage: DAILY DOSE: 120 MILLIGRAM
  19. TRIMEPRAZINE [Concomitant]
     Active Substance: TRIMEPRAZINE
     Dosage: AT BEDTIME
  20. DIAZEPAM [Concomitant]
     Active Substance: DIAZEPAM
     Dosage: 3/DAY
  21. TRIHEXYPHENIDYL HYDROCHLORIDE [Concomitant]
     Active Substance: TRIHEXYPHENIDYL HYDROCHLORIDE
     Dosage: 5 MG MORNING AND EVENING
  22. ZOPICLONE [Concomitant]
     Active Substance: ZOPICLONE
     Dosage: AT BEDTIME
  23. ABILIFY [Concomitant]
     Active Substance: ARIPIPRAZOLE
     Dosage: 15 MG
  24. VALIUM [Concomitant]
     Active Substance: DIAZEPAM
     Dosage: THREE TIMES DAILY
     Route: 048
  25. PIPERACILLIN SODIUM\TAZOBACTAM SODIUM [Concomitant]
     Active Substance: PIPERACILLIN SODIUM\TAZOBACTAM SODIUM
     Indication: Respiratory failure
  26. GENTAMICIN [Concomitant]
     Active Substance: GENTAMICIN
     Indication: Respiratory failure

REACTIONS (3)
  - Intestinal obstruction [Recovered/Resolved with Sequelae]
  - Abdominal compartment syndrome [Recovered/Resolved with Sequelae]
  - Intestinal ischaemia [Recovered/Resolved with Sequelae]

NARRATIVE: CASE EVENT DATE: 20251002
